FAERS Safety Report 6674086-8 (Version None)
Quarter: 2010Q2

REPORT INFORMATION
  Report Type: 
  Country: None (occurrence: None)
  Receive Date: 20100409
  Receipt Date: 20100406
  Transmission Date: 20101027
  Serious: Yes (Death, Hospitalization)
  Sender: FDA-Public Use
  Company Number: US-WYE-H14428310

PATIENT
  Sex: Male

DRUGS (3)
  1. TEMSIROLIMUS [Suspect]
     Indication: SQUAMOUS CELL CARCINOMA
     Dosage: NOT PROVIDED
     Route: 065
     Dates: start: 20100215, end: 20100329
  2. CARBOPLATIN [Suspect]
     Indication: SQUAMOUS CELL CARCINOMA
     Dosage: NOT PROVIDED
     Route: 065
     Dates: start: 20100215, end: 20100329
  3. TAXOL [Suspect]
     Indication: SQUAMOUS CELL CARCINOMA
     Dosage: NOT PROVIDED
     Route: 065
     Dates: start: 20100215, end: 20100329

REACTIONS (1)
  - SEPTIC SHOCK [None]
